FAERS Safety Report 14089188 (Version 6)
Quarter: 2020Q4

REPORT INFORMATION
  Report Type: Spontaneous
  Country: US (occurrence: US)
  Receive Date: 20171013
  Receipt Date: 20201028
  Transmission Date: 20210113
  Serious: Yes (Other)
  Sender: FDA-Public Use
  Company Number: US-BEH-2017084319

PATIENT
  Age: 31 Year
  Sex: Female

DRUGS (6)
  1. HYDROXYCHLOROQUINE [Suspect]
     Active Substance: HYDROXYCHLOROQUINE
     Indication: SYSTEMIC LUPUS ERYTHEMATOSUS
     Dosage: 200 MG, QD
     Route: 065
  2. HYDROXYCHLOROQUINE [Suspect]
     Active Substance: HYDROXYCHLOROQUINE
     Dosage: 400 MG, QD (AT 6 WEEKS GESTATION)
     Route: 065
  3. HUMAN IMMUNOGLOBULIN (INN) [Suspect]
     Active Substance: HUMAN IMMUNOGLOBULIN G
     Indication: PROPHYLAXIS
  4. HUMAN IMMUNOGLOBULIN (INN) [Suspect]
     Active Substance: HUMAN IMMUNOGLOBULIN G
     Indication: HEART BLOCK CONGENITAL
     Dosage: 400 1G/KG
     Route: 042
  5. DEXAMETHASONE. [Suspect]
     Active Substance: DEXAMETHASONE
     Indication: HEART BLOCK CONGENITAL
     Dosage: 8 MG, UNK
     Route: 065
  6. DEXAMETHASONE. [Suspect]
     Active Substance: DEXAMETHASONE
     Indication: PROPHYLAXIS

REACTIONS (4)
  - Abortion induced [Unknown]
  - Drug ineffective for unapproved indication [Unknown]
  - Exposure during pregnancy [Unknown]
  - Product use in unapproved indication [Unknown]
